FAERS Safety Report 20355610 (Version 1)
Quarter: 2022Q1

REPORT INFORMATION
  Report Type: Spontaneous
  Country: US (occurrence: US)
  Receive Date: 20220120
  Receipt Date: 20220120
  Transmission Date: 20220424
  Serious: Yes (Other)
  Sender: FDA-Public Use
  Company Number: US-ELI_LILLY_AND_COMPANY-US202201005531

PATIENT
  Sex: Female

DRUGS (3)
  1. TRULICITY [Suspect]
     Active Substance: DULAGLUTIDE
     Indication: Type 2 diabetes mellitus
     Dosage: 3 MG, UNKNOWN
     Route: 065
     Dates: start: 202102, end: 2021
  2. TRULICITY [Suspect]
     Active Substance: DULAGLUTIDE
     Indication: Type 2 diabetes mellitus
     Dosage: 1.5 MG, UNKNOWN
     Route: 065
     Dates: end: 202102
  3. TRULICITY [Suspect]
     Active Substance: DULAGLUTIDE
     Dosage: 1.5 MG, UNKNOWN
     Route: 065

REACTIONS (12)
  - Renal neoplasm [Unknown]
  - Headache [Unknown]
  - Lymphadenopathy [Unknown]
  - Weight decreased [Unknown]
  - Blood glucose increased [Unknown]
  - Increased appetite [Unknown]
  - Injection site pain [Unknown]
  - Pharyngeal swelling [Unknown]
  - Swelling face [Unknown]
  - Gastrointestinal pain [Unknown]
  - Decreased appetite [Unknown]
  - Diarrhoea [Unknown]
